FAERS Safety Report 6999910-0 (Version None)
Quarter: 2010Q3

REPORT INFORMATION
  Report Type: 
  Country: None (occurrence: None)
  Receive Date: 20100920
  Receipt Date: 20090909
  Transmission Date: 20110219
  Serious: No
  Sender: FDA-Public Use
  Company Number: US-ASTRAZENECA-2009SE12108

PATIENT
  Age: 13 Year
  Sex: Male

DRUGS (2)
  1. SEROQUEL [Suspect]
     Route: 048
  2. ABILIFY [Suspect]
     Route: 065

REACTIONS (3)
  - DYSKINESIA [None]
  - STREPTOCOCCAL INFECTION [None]
  - SYDENHAM'S CHOREA [None]
